FAERS Safety Report 5055774-6 (Version None)
Quarter: 2006Q3

REPORT INFORMATION
  Report Type: 
  Country: None (occurrence: None)
  Receive Date: 20060714
  Receipt Date: 20060702
  Transmission Date: 20061208
  Serious: Yes (Other)
  Sender: FDA-Public Use
  Company Number: 14359

PATIENT
  Age: 66 Year
  Sex: Male

DRUGS (4)
  1. METHOTREXATE [Suspect]
     Indication: PSORIASIS
  2. METHOTREXATE [Suspect]
     Indication: PSORIATIC ARTHROPATHY
  3. CALCIPOTRIENE [Concomitant]
  4. FLUOCINONIDE [Concomitant]

REACTIONS (8)
  - BACILLARY ANGIOMATOSIS [None]
  - HAEMANGIOMA [None]
  - HAEMORRHAGE [None]
  - MALIGNANT HISTIOCYTOSIS [None]
  - NODULE [None]
  - PSORIASIS [None]
  - RASH ERYTHEMATOUS [None]
  - RASH PRURITIC [None]
